FAERS Safety Report 7815523-2 (Version None)
Quarter: 2011Q4

REPORT INFORMATION
  Report Type: 
  Country: None (occurrence: None)
  Receive Date: 20111014
  Receipt Date: 20111005
  Transmission Date: 20120403
  Serious: Yes (Life-Threatening, Hospitalization, Other)
  Sender: FDA-Public Use
  Company Number: JP-CELGENEUS-087-21880-11020310

PATIENT
  Sex: Male
  Weight: 54 kg

DRUGS (9)
  1. REVLIMID [Suspect]
     Indication: MULTIPLE MYELOMA
     Dosage: 25 MILLIGRAM
     Route: 048
     Dates: start: 20101222, end: 20101227
  2. GLYBURIDE [Concomitant]
     Indication: DIABETES MELLITUS
     Dosage: 2.5 MILLIGRAM
     Route: 048
     Dates: start: 20090609
  3. DEXAMETHASONE [Suspect]
     Indication: MULTIPLE MYELOMA
     Dosage: 40 MILLIGRAM
     Route: 048
     Dates: start: 20101222, end: 20101222
  4. NORVASC [Concomitant]
     Indication: HYPERTENSION
     Dosage: 5 MILLIGRAM
     Route: 048
     Dates: start: 20061104
  5. LAMISIL [Concomitant]
     Route: 048
  6. BASEN [Concomitant]
     Indication: DIABETES MELLITUS
     Dosage: .3 MILLIGRAM
     Route: 048
     Dates: start: 20090507
  7. FAMOTIDINE [Concomitant]
     Indication: PROPHYLAXIS
     Dosage: 20 MILLIGRAM
     Route: 048
     Dates: start: 20061014
  8. HARNAL D [Concomitant]
     Dosage: 2 MILLIGRAM
     Route: 048
     Dates: start: 20081024
  9. SULFAMETHOXAZOLE [Concomitant]
     Indication: PROPHYLAXIS
     Dosage: 2 TABLET
     Route: 048
     Dates: start: 20061014

REACTIONS (1)
  - PULMONARY ALVEOLAR HAEMORRHAGE [None]
